FAERS Safety Report 6285708-8 (Version None)
Quarter: 2009Q3

REPORT INFORMATION
  Report Type: 
  Country: None (occurrence: None)
  Receive Date: 20090727
  Receipt Date: 20090716
  Transmission Date: 20100115
  Serious: Yes (Hospitalization)
  Sender: FDA-Public Use
  Company Number: US-GILEAD-2009-0023150

PATIENT
  Age: 26 Year
  Sex: Female
  Weight: 69.3 kg

DRUGS (5)
  1. TRUVADA [Suspect]
     Indication: HIV INFECTION
     Route: 048
     Dates: start: 20090612
  2. NEVIRAPINE [Concomitant]
     Indication: HIV INFECTION
     Route: 048
  3. NEVIRAPINE [Concomitant]
     Dates: start: 20090612
  4. AMITRIPTYLINE HCL [Concomitant]
  5. CHLORPROMAZINE [Concomitant]

REACTIONS (1)
  - ACUTE PSYCHOSIS [None]
